FAERS Safety Report 8835848 (Version 1)
Quarter: 2012Q4

REPORT INFORMATION
  Report Type: Report from Study
  Country: US (occurrence: US)
  Receive Date: 20121011
  Receipt Date: 20121011
  Transmission Date: 20130627
  Serious: Yes (Other)
  Sender: FDA-Public Use
  Company Number: US-ASTELLAS-2012US010043

PATIENT

DRUGS (3)
  1. ERLOTINIB TABLET [Suspect]
     Indication: NON-SMALL CELL LUNG CANCER
     Dosage: 150 mg, Daily in 28 day cycle
     Route: 048
  2. ENZASTAURIN [Suspect]
     Indication: NON-SMALL CELL LUNG CANCER
     Dosage: 1125 mg, Loading dose
     Route: 048
  3. ENZASTAURIN [Suspect]
     Dosage: 250 mg, bid in 28 day cycle
     Route: 048

REACTIONS (1)
  - Metabolic disorder [Unknown]
